FAERS Safety Report 8270045-2 (Version None)
Quarter: 2012Q2

REPORT INFORMATION
  Report Type: 
  Country: None (occurrence: None)
  Receive Date: 20120406
  Receipt Date: 20120329
  Transmission Date: 20120825
  Serious: Yes (Hospitalization, Other)
  Sender: FDA-Public Use
  Company Number: TPA2012A01501

PATIENT
  Sex: Male

DRUGS (3)
  1. ACTOS [Suspect]
     Dosage: 45 MG, 1 IN 1 D, PER ORAL
     Route: 048
  2. LANTUS [Suspect]
  3. GLIMEPIRIDE [Suspect]

REACTIONS (2)
  - ECONOMIC PROBLEM [None]
  - THERAPY CESSATION [None]
